FAERS Safety Report 7441487-X (Version None)
Quarter: 2011Q2

REPORT INFORMATION
  Report Type: 
  Country: None (occurrence: None)
  Receive Date: 20110428
  Receipt Date: 20110414
  Transmission Date: 20111010
  Serious: Yes (Other)
  Sender: FDA-Public Use
  Company Number: TR-CELGENEUS-161-C5013-11041665

PATIENT
  Sex: Female

DRUGS (1)
  1. LENALIDOMIDE [Suspect]
     Route: 048
     Dates: start: 20100402, end: 20110217

REACTIONS (1)
  - COLON CANCER [None]
